FAERS Safety Report 14140740 (Version 1)
Quarter: 2017Q4

REPORT INFORMATION
  Report Type: Report from Study
  Country: US (occurrence: US)
  Receive Date: 20171030
  Receipt Date: 20171030
  Transmission Date: 20180321
  Serious: No
  Sender: FDA-Public Use
  Company Number: US-AMGEN-USASL2017163734

PATIENT
  Age: 80 Year
  Sex: Female

DRUGS (1)
  1. ENBREL [Suspect]
     Active Substance: ETANERCEPT
     Indication: RHEUMATOID ARTHRITIS
     Dosage: 50 MG, Q2WK
     Route: 065

REACTIONS (6)
  - Dizziness [Unknown]
  - Asthenia [Unknown]
  - Injection site pain [Unknown]
  - Nausea [Unknown]
  - Drug ineffective [Unknown]
  - Mobility decreased [Unknown]
